FAERS Safety Report 5774398-6 (Version None)
Quarter: 2008Q2

REPORT INFORMATION
  Report Type: 
  Country: None (occurrence: None)
  Receive Date: 20080616
  Receipt Date: 20080612
  Transmission Date: 20081010
  Serious: Yes (Death, Life-Threatening, Hospitalization, Other)
  Sender: FDA-Public Use
  Company Number: PH-ASTRAZENECA-2008AP03660

PATIENT
  Age: 25637 Day
  Sex: Male

DRUGS (22)
  1. MERONEM [Suspect]
  2. NO STUDY DRUG [Suspect]
     Indication: CHRONIC OBSTRUCTIVE PULMONARY DISEASE
     Route: 055
  3. CLARITHROMYCIN [Suspect]
  4. LEVOFLOXACIN [Suspect]
  5. CEPIMAX [Suspect]
  6. ALBUMIN 25% TIV [Suspect]
  7. COMBIVENT NEBULISER [Suspect]
  8. FLUIMUCIL [Suspect]
  9. CORDARONE [Suspect]
  10. ISOSORBIDE DINITRATE [Suspect]
  11. CATAPRES [Suspect]
  12. ACETAMINOPHEN [Suspect]
  13. ANSIMAR [Concomitant]
     Indication: CHRONIC OBSTRUCTIVE PULMONARY DISEASE
     Dosage: }6MTHS PRIOR TO STUDY START
     Route: 048
     Dates: end: 20080502
  14. DUAVENT [Concomitant]
     Indication: CHRONIC OBSTRUCTIVE PULMONARY DISEASE
     Dosage: }6MTHS PRIOR TO STUDY START
     Route: 055
     Dates: end: 20080504
  15. CARVEDILOL [Concomitant]
     Indication: MYOCARDIAL ISCHAEMIA
     Dosage: }6MTHS PRIOR TO STUDY START
     Route: 048
  16. MICARDIS HCT [Concomitant]
     Indication: HYPERTENSION
     Dosage: }6MTHS PRIOR TO STUDY START
     Route: 048
  17. ASPILET [Concomitant]
     Indication: MYOCARDIAL ISCHAEMIA
     Dosage: }6MTHS PRIOR TO STUDY START
     Route: 048
  18. LIPITOR [Concomitant]
     Indication: MYOCARDIAL ISCHAEMIA
     Dosage: }6MTHS PRIOR TO STUDY START
     Route: 048
  19. LANOXIN [Concomitant]
     Indication: MYOCARDIAL ISCHAEMIA
     Dosage: }6MTHS PRIOR TO STUDY START
     Route: 048
  20. BRICANYL [Concomitant]
     Indication: CHRONIC OBSTRUCTIVE PULMONARY DISEASE
     Route: 055
     Dates: start: 20080504, end: 20080513
  21. BUDECORT [Concomitant]
     Indication: CHRONIC OBSTRUCTIVE PULMONARY DISEASE
     Route: 055
     Dates: start: 20080504, end: 20080513
  22. SYMBICORT [Concomitant]
     Indication: CHRONIC OBSTRUCTIVE PULMONARY DISEASE
     Dosage: }6MTHS PRIOR TO STUDY START
     Route: 055
     Dates: end: 20080502

REACTIONS (1)
  - PNEUMONIA [None]
